FAERS Safety Report 11856893 (Version 4)
Quarter: 2016Q2

REPORT INFORMATION
  Report Type: Report from Study
  Country: KR (occurrence: KR)
  Receive Date: 20151221
  Receipt Date: 20160511
  Transmission Date: 20160815
  Serious: Yes (Other)
  Sender: FDA-Public Use
  Company Number: KR-REGENERON PHARMACEUTICALS, INC.-2015-10507

PATIENT

DRUGS (8)
  1. EYLEA [Suspect]
     Active Substance: AFLIBERCEPT
     Dosage: PATIENT RECEIVED 9TH INJECTION IN RIGHT EYE
     Route: 031
     Dates: start: 20160323, end: 20160323
  2. EYLEA [Suspect]
     Active Substance: AFLIBERCEPT
     Dosage: 2 MG,  2 MONTH
     Route: 031
     Dates: start: 20141115, end: 20141115
  3. EYLEA [Suspect]
     Active Substance: AFLIBERCEPT
     Dosage: INJECTION ON LEFT EYE
     Route: 031
     Dates: start: 20150601, end: 20150601
  4. EYLEA [Suspect]
     Active Substance: AFLIBERCEPT
     Dosage: INJECTION ON LEFT EYE
     Route: 031
     Dates: start: 20150420, end: 20150420
  5. EYLEA [Suspect]
     Active Substance: AFLIBERCEPT
     Dosage: 2 MG, UNK
     Route: 031
     Dates: start: 20150608, end: 20150608
  6. EYLEA [Suspect]
     Active Substance: AFLIBERCEPT
     Indication: AGE-RELATED MACULAR DEGENERATION
     Dosage: 2 MG
     Route: 031
     Dates: start: 201405
  7. EYLEA [Suspect]
     Active Substance: AFLIBERCEPT
     Dosage: INJECTION ON LEFT EYE
     Route: 031
     Dates: start: 20150313, end: 20150313
  8. EYLEA [Suspect]
     Active Substance: AFLIBERCEPT
     Dosage: 2 MG,  2 MONTH
     Route: 031
     Dates: start: 20150114, end: 20150114

REACTIONS (13)
  - Age-related macular degeneration [Recovered/Resolved]
  - Vitreous floaters [Recovered/Resolved]
  - Photophobia [Not Recovered/Not Resolved]
  - Discomfort [Recovered/Resolved]
  - Metamorphopsia [Recovered/Resolved]
  - Injection site pain [Recovered/Resolved]
  - Retinal injury [Unknown]
  - Eye pain [Recovered/Resolved]
  - Intraocular pressure increased [Recovered/Resolved]
  - Ocular discomfort [Recovering/Resolving]
  - Ocular discomfort [Recovered/Resolved]
  - Lacrimation increased [Recovered/Resolved]
  - Eye disorder [Recovering/Resolving]

NARRATIVE: CASE EVENT DATE: 201503
